FAERS Safety Report 6427908-X (Version None)
Quarter: 2009Q4

REPORT INFORMATION
  Report Type: 
  Country: None (occurrence: None)
  Receive Date: 20091104
  Receipt Date: 20091104
  Transmission Date: 20100525
  Serious: Yes (Hospitalization)
  Sender: FDA-Public Use
  Company Number: None

PATIENT
  Age: 67 Year
  Sex: Male

DRUGS (2)
  1. GEMCITABINE [Suspect]
     Indication: BLADDER CANCER
     Dosage: 2000 MG OTHER IV
     Route: 042
     Dates: start: 20090915, end: 20090915
  2. CARBOPLATIN [Suspect]
     Indication: BLADDER CANCER
     Dosage: 700 MG OTHER IV
     Route: 042
     Dates: start: 20090908, end: 20090908

REACTIONS (7)
  - ABDOMINAL PAIN [None]
  - BACK PAIN [None]
  - BACTERIAL TEST POSITIVE [None]
  - CHILLS [None]
  - KLEBSIELLA INFECTION [None]
  - NEUTROPENIA [None]
  - SEPSIS [None]
